FAERS Safety Report 8609497-4 (Version None)
Quarter: 2012Q3

REPORT INFORMATION
  Report Type: 
  Country: None (occurrence: None)
  Receive Date: 20120810
  Receipt Date: 20120810
  Transmission Date: 20120928
  Serious: Yes (Other)
  Sender: FDA-Public Use
  Company Number: None

PATIENT
  Age: 34 Year
  Sex: Male
  Weight: 90.7194 kg

DRUGS (2)
  1. PROPECIA [Suspect]
     Indication: ALOPECIA
     Dosage: 1.25 MG DAILY PO
     Route: 048
     Dates: start: 20100201, end: 20110719
  2. CYMBALTA [Concomitant]

REACTIONS (12)
  - HYPOAESTHESIA [None]
  - MALAISE [None]
  - BLOOD TESTOSTERONE DECREASED [None]
  - INSOMNIA [None]
  - LIBIDO DECREASED [None]
  - DEPRESSION [None]
  - SEXUAL DYSFUNCTION [None]
  - PENIS DISORDER [None]
  - EJACULATION DISORDER [None]
  - PANIC ATTACK [None]
  - SUICIDAL IDEATION [None]
  - CRYING [None]
